FAERS Safety Report 24831315 (Version 2)
Quarter: 2025Q1

REPORT INFORMATION
  Report Type: Spontaneous
  Country: US (occurrence: US)
  Receive Date: 20250110
  Receipt Date: 20250110
  Transmission Date: 20250409
  Serious: No
  Sender: SANOFI AVENTIS
  Company Number: US-SA-2025SA006395

PATIENT
  Age: 66 Year
  Sex: Male
  Weight: 58.18 kg

DRUGS (8)
  1. DUPIXENT [Suspect]
     Active Substance: DUPILUMAB
     Indication: Dermatitis atopic
     Dosage: 300 MG, QOW
     Route: 058
     Dates: start: 20220308
  2. TERBINAFINE HYDROCHLORIDE [Concomitant]
     Active Substance: TERBINAFINE HYDROCHLORIDE
  3. TRIAD [Concomitant]
     Active Substance: ACETAMINOPHEN\BUTALBITAL\CAFFEINE
  4. LISINOPRIL [Concomitant]
     Active Substance: LISINOPRIL
  5. SOOLANTRA [Concomitant]
     Active Substance: IVERMECTIN
  6. CICLOPIROX [Concomitant]
     Active Substance: CICLOPIROX
  7. VISION PLUS [Concomitant]
  8. LUTEIN [Concomitant]
     Active Substance: LUTEIN

REACTIONS (5)
  - Muscle spasms [Recovering/Resolving]
  - Weight increased [Unknown]
  - Weight fluctuation [Unknown]
  - Rash [Recovered/Resolved]
  - Intentional product misuse [Unknown]
